FAERS Safety Report 16984056 (Version 1)
Quarter: 2019Q4

REPORT INFORMATION
  Report Type: Spontaneous
  Country: US (occurrence: US)
  Receive Date: 20190917
  Receipt Date: 20190917
  Transmission Date: 20200122
  Serious: No
  Sender: FDA-Public Use
  Company Number: None

PATIENT

DRUGS (2)
  1. KISQALI FEMARA CO-PACK [Suspect]
     Active Substance: LETROZOLE\RIBOCICLIB
     Indication: BREAST CANCER
     Route: 048
     Dates: start: 201909
  2. FEMARA [Concomitant]
     Active Substance: LETROZOLE

REACTIONS (1)
  - Cough [None]

NARRATIVE: CASE EVENT DATE: 20190917
